FAERS Safety Report 7007741 (Version 21)
Quarter: 2012Q4

REPORT INFORMATION
  Report Type: 
  Country: CA (occurrence: CA)
  Receive Date: 20090601
  Receipt Date: 20121104
  Transmission Date: 20130627
  Serious: Yes (Hospitalization, Other)
  Sender: FDA-Public Use
  Company Number: PHHY2009CA19887

PATIENT
  Age: 77 Year
  Sex: Male

DRUGS (1)
  1. ZOMETA [Suspect]
     Indication: PROSTATE CANCER
     Dosage: 4 mg, every 4 weeks
     Route: 042
     Dates: start: 20080609, end: 20100116

REACTIONS (6)
  - General physical health deterioration [Unknown]
  - Prostatic specific antigen increased [Unknown]
  - Glomerular filtration rate decreased [Unknown]
  - Asthenia [Unknown]
  - Blood calcium decreased [Unknown]
  - Blood creatinine increased [Unknown]
